FAERS Safety Report 17967924 (Version 1)
Quarter: 2020Q2

REPORT INFORMATION
  Report Type: Spontaneous
  Country: CN (occurrence: CN)
  Receive Date: 20200625
  Receipt Date: 20200625
  Transmission Date: 20200714
  Serious: Yes (Hospitalization, Other)
  Sender: FDA-Public Use
  Company Number: CN-009507513-2006CHN007940

PATIENT
  Age: 54 Year
  Sex: Female

DRUGS (6)
  1. SEROQUEL [Suspect]
     Active Substance: QUETIAPINE FUMARATE
     Route: 048
  2. ZAVICEFTA [Suspect]
     Active Substance: AVIBACTAM SODIUM\CEFTAZIDIME
     Dosage: 1.25 GRAM, Q12H
     Dates: start: 202006
  3. ZAVICEFTA [Suspect]
     Active Substance: AVIBACTAM SODIUM\CEFTAZIDIME
     Indication: ABDOMINAL INFECTION
     Dosage: 2.5 GRAM, Q8
     Dates: start: 20200606, end: 202006
  4. TYGACIL [Suspect]
     Active Substance: TIGECYCLINE
     Dosage: 50 MG, Q12H
  5. CASPOFUNGIN ACETATE. [Suspect]
     Active Substance: CASPOFUNGIN ACETATE
     Dosage: 50 MILLIGRAM, QD
  6. ZAVICEFTA [Suspect]
     Active Substance: AVIBACTAM SODIUM\CEFTAZIDIME
     Indication: KLEBSIELLA INFECTION
     Dosage: 1.25 GRAM, Q12
     Dates: end: 20200606

REACTIONS (11)
  - Pneumonia [Unknown]
  - Blood creatinine increased [Unknown]
  - Liver transplant [Unknown]
  - Mental disorder [Unknown]
  - Abdominal infection [Unknown]
  - Coma [Unknown]
  - Klebsiella infection [Unknown]
  - Creatinine renal clearance decreased [Unknown]
  - Platelet count decreased [Not Recovered/Not Resolved]
  - Respiratory tract haemorrhage [Unknown]
  - Hypotension [Unknown]

NARRATIVE: CASE EVENT DATE: 2020
